FAERS Safety Report 18415686 (Version 2)
Quarter: 2020Q4

REPORT INFORMATION
  Report Type: Spontaneous
  Country: BE (occurrence: BE)
  Receive Date: 20201022
  Receipt Date: 20201123
  Transmission Date: 20210114
  Serious: Yes (Other)
  Sender: FDA-Public Use
  Company Number: BE-PFIZER INC-2020406787

PATIENT
  Age: 37 Year
  Sex: Male
  Weight: 77.7 kg

DRUGS (1)
  1. TEMESTA (LORAZEPAM) [Suspect]
     Active Substance: LORAZEPAM
     Indication: ANXIETY
     Dosage: 2 DF, DAILY (2 TIMES A DAY 1 TABLET)
     Route: 048
     Dates: start: 20201007, end: 20201009

REACTIONS (2)
  - Libido disorder [Unknown]
  - Erectile dysfunction [Unknown]

NARRATIVE: CASE EVENT DATE: 20201007
